APPROVED DRUG PRODUCT: ZOLPIDEM TARTRATE
Active Ingredient: ZOLPIDEM TARTRATE
Strength: 12.5MG
Dosage Form/Route: TABLET, EXTENDED RELEASE;ORAL
Application: A078179 | Product #001
Applicant: ACTAVIS ELIZABETH LLC AN INDIRECT WHOLLY OWNED SUB OF TEVA PHARMACEUTICALS USA INC
Approved: Jun 6, 2011 | RLD: No | RS: No | Type: DISCN